FAERS Safety Report 6803390-5 (Version None)
Quarter: 2010Q2

REPORT INFORMATION
  Report Type: 
  Country: None (occurrence: None)
  Receive Date: 20100628
  Receipt Date: 20100622
  Transmission Date: 20101027
  Serious: Yes (Hospitalization, Other)
  Sender: FDA-Public Use
  Company Number: US-BAYER-201017191BCC

PATIENT
  Age: 66 Year
  Sex: Female
  Weight: 86 kg

DRUGS (7)
  1. ALKA SELTZER LIQUID GELS [Suspect]
     Indication: PAIN
     Dosage: UNIT DOSE: 1 DF
     Route: 048
  2. THYROID TAB [Concomitant]
     Route: 065
  3. NEURONTIN [Concomitant]
     Route: 065
  4. METFORMIN HCL [Concomitant]
     Route: 065
  5. COENZYME Q10 [Concomitant]
     Route: 065
  6. RANITIDINE [Concomitant]
     Route: 065
  7. UNKNOWN BLOOD PRESSURE MEDICATION [Concomitant]
     Route: 065

REACTIONS (2)
  - GASTRIC ULCER [None]
  - PAIN [None]
